FAERS Safety Report 6917008-4 (Version None)
Quarter: 2010Q3

REPORT INFORMATION
  Report Type: 
  Country: None (occurrence: None)
  Receive Date: 20100810
  Receipt Date: 20100730
  Transmission Date: 20110219
  Serious: Yes (Hospitalization)
  Sender: FDA-Public Use
  Company Number: A0866461A

PATIENT
  Age: 49 Year
  Sex: Male

DRUGS (1)
  1. AVANDAMET [Suspect]
     Indication: TYPE 2 DIABETES MELLITUS
     Dosage: 1TAB TWICE PER DAY
     Dates: start: 20040927, end: 20050102

REACTIONS (6)
  - CARDIAC FAILURE CONGESTIVE [None]
  - CARDIAC PACEMAKER INSERTION [None]
  - GLYCOSYLATED HAEMOGLOBIN INCREASED [None]
  - IMPLANTABLE DEFIBRILLATOR INSERTION [None]
  - NEPHROLITHIASIS [None]
  - PANIC ATTACK [None]
